FAERS Safety Report 5190064-2 (Version None)
Quarter: 2006Q4

REPORT INFORMATION
  Report Type: 
  Country: None (occurrence: None)
  Receive Date: 20061222
  Receipt Date: 20061215
  Transmission Date: 20070319
  Serious: Yes (Hospitalization, Other)
  Sender: FDA-Public Use
  Company Number: US-JNJFOC-20060904632

PATIENT
  Sex: Male
  Weight: 77.11 kg

DRUGS (13)
  1. REMICADE [Suspect]
     Route: 042
  2. REMICADE [Suspect]
     Route: 042
  3. REMICADE [Suspect]
     Indication: RHEUMATOID ARTHRITIS
     Route: 042
  4. CELEBREX [Concomitant]
  5. PREDNISONE TAB [Concomitant]
  6. METHOTREXATE [Concomitant]
  7. LUPRON [Concomitant]
     Indication: PROSTATE CANCER
  8. CASODEX [Concomitant]
     Indication: PROSTATE CANCER
  9. FOLIC ACID [Concomitant]
  10. HYTRIN [Concomitant]
  11. PROSCAR [Concomitant]
     Indication: PROSTATE CANCER
  12. METOPROLOL SUCCINATE [Concomitant]
  13. ACIPHEX [Concomitant]

REACTIONS (8)
  - ATELECTASIS [None]
  - HYPOTENSION [None]
  - IMMUNE SYSTEM DISORDER [None]
  - LUNG NEOPLASM [None]
  - PLEURAL EFFUSION [None]
  - PNEUMONIA [None]
  - PROSTATE CANCER [None]
  - PYREXIA [None]
